FAERS Safety Report 18583078 (Version 3)
Quarter: 2021Q3

REPORT INFORMATION
  Report Type: Report from Study
  Country: FR (occurrence: FR)
  Receive Date: 20201206
  Receipt Date: 20210819
  Transmission Date: 20211014
  Serious: Yes (Hospitalization, Other)
  Sender: FDA-Public Use
  Company Number: FR-ROCHE-2721020

PATIENT
  Age: 63 Year
  Sex: Male
  Weight: 76 kg

DRUGS (8)
  1. BACTRIM [Concomitant]
     Active Substance: SULFAMETHOXAZOLE\TRIMETHOPRIM
     Indication: PROPHYLAXIS
     Dosage: 1 TAB
     Dates: start: 20190220
  2. BACTRIM [Concomitant]
     Active Substance: SULFAMETHOXAZOLE\TRIMETHOPRIM
     Dates: start: 20201124, end: 20201204
  3. ZELITREX [Concomitant]
     Active Substance: VALACYCLOVIR HYDROCHLORIDE
     Indication: PROPHYLAXIS
     Dates: start: 20190220
  4. OBINUTUZUMAB. [Suspect]
     Active Substance: OBINUTUZUMAB
     Indication: FOLLICULAR LYMPHOMA
     Dosage: THE LAST DOSE OF  OBINUTUZUMAB PRIOR TO SERIOUS ADVERSE EVENT (SAE) WAS ON 01/OCT/2020.?1000 MG ON D
     Route: 042
     Dates: start: 20190219
  5. BGB?3111 [Suspect]
     Active Substance: ZANUBRUTINIB
     Indication: FOLLICULAR LYMPHOMA
     Dosage: THE LAST DOSE OF  BGB?3111 PRIOR TO SERIOUS ADVERSE EVENT (SAE) WAS ON 24/NOV/2020 160 MG ?80 MG CAP
     Route: 048
     Dates: start: 20190219
  6. FOLINORAL [Concomitant]
     Active Substance: LEUCOVORIN CALCIUM
     Indication: PROPHYLAXIS
     Dates: start: 20190220
  7. FOLINORAL [Concomitant]
     Active Substance: LEUCOVORIN CALCIUM
     Dates: start: 20201124, end: 20201204
  8. ZELITREX [Concomitant]
     Active Substance: VALACYCLOVIR HYDROCHLORIDE
     Dates: start: 20201124, end: 20201204

REACTIONS (2)
  - COVID-19 pneumonia [Recovered/Resolved]
  - Sepsis [Recovered/Resolved]

NARRATIVE: CASE EVENT DATE: 20201124
